FAERS Safety Report 11756166 (Version 5)
Quarter: 2016Q1

REPORT INFORMATION
  Report Type: Report from Study
  Country: BE (occurrence: BE)
  Receive Date: 20151119
  Receipt Date: 20160203
  Transmission Date: 20160525
  Serious: Yes (Hospitalization)
  Sender: FDA-Public Use
  Company Number: BE-ABBVIE-15P-013-1407231-00

PATIENT
  Sex: Male
  Weight: 61 kg

DRUGS (12)
  1. REMERGIL [Concomitant]
     Active Substance: MIRTAZAPINE
     Indication: PRODUCT USED FOR UNKNOWN INDICATION
     Route: 048
     Dates: start: 201509
  2. DUODOPA [Suspect]
     Active Substance: CARBIDOPA\LEVODOPA
     Indication: PARKINSON^S DISEASE
     Route: 050
     Dates: start: 20141117, end: 20141121
  3. ASAFLOW [Concomitant]
     Active Substance: ASPIRIN
     Indication: PRODUCT USED FOR UNKNOWN INDICATION
  4. FOLAVIT [Concomitant]
     Indication: PRODUCT USED FOR UNKNOWN INDICATION
  5. CRESTOR [Concomitant]
     Active Substance: ROSUVASTATIN CALCIUM
     Indication: PRODUCT USED FOR UNKNOWN INDICATION
  6. DUODOPA [Suspect]
     Active Substance: CARBIDOPA\LEVODOPA
     Dosage: AM DOSE=7.5ML, CD=3.7ML/H FOR 16HRS AND ED=1.5ML
     Route: 050
     Dates: start: 20141121, end: 20141121
  7. DUODOPA [Suspect]
     Active Substance: CARBIDOPA\LEVODOPA
     Dosage: AM=7.5ML, CD=3.8ML/H FOR 16HRS, ED=2ML
     Route: 050
     Dates: start: 20150522, end: 20150603
  8. PANTOPRAZOL [Concomitant]
     Active Substance: PANTOPRAZOLE SODIUM
     Indication: PRODUCT USED FOR UNKNOWN INDICATION
  9. DUODOPA [Suspect]
     Active Substance: CARBIDOPA\LEVODOPA
     Dosage: AM=7.5ML, CD=3.7ML/H FOR 16HRS, ED=1.5ML
     Route: 050
     Dates: start: 20150518, end: 20150522
  10. DUODOPA [Suspect]
     Active Substance: CARBIDOPA\LEVODOPA
     Dosage: AM=7.5ML, CD=3.8ML/H FOR 16HRS, ED=2ML
     Route: 050
     Dates: start: 20150615
  11. EMCONCOR [Concomitant]
     Active Substance: BISOPROLOL FUMARATE
     Indication: PRODUCT USED FOR UNKNOWN INDICATION
  12. DUODOPA [Suspect]
     Active Substance: CARBIDOPA\LEVODOPA
     Dosage: AM=7.5ML, CD=4ML/H FOR 16HRS, ED=2ML
     Route: 050
     Dates: start: 20150603, end: 20150615

REACTIONS (12)
  - Balance disorder [Not Recovered/Not Resolved]
  - Dizziness [Not Recovered/Not Resolved]
  - Device dislocation [Recovered/Resolved]
  - Immobile [Unknown]
  - Stoma site erythema [Unknown]
  - Hypotension [Not Recovered/Not Resolved]
  - Feeding tube user [Unknown]
  - Blood pressure fluctuation [Not Recovered/Not Resolved]
  - Vertigo [Unknown]
  - Excessive granulation tissue [Not Recovered/Not Resolved]
  - Decreased appetite [Unknown]
  - Incorrect route of drug administration [Unknown]
